FAERS Safety Report 7680913-8 (Version None)
Quarter: 2011Q3

REPORT INFORMATION
  Report Type: 
  Country: None (occurrence: None)
  Receive Date: 20110812
  Receipt Date: 20110803
  Transmission Date: 20111222
  Serious: Yes (Other)
  Sender: FDA-Public Use
  Company Number: US-ASTRAZENECA-2011SE46575

PATIENT
  Age: 68 Year
  Sex: Female
  Weight: 165.6 kg

DRUGS (8)
  1. DICYCLOMINE [Concomitant]
  2. CLONAZEPAM [Concomitant]
  3. NEXIUM [Suspect]
     Indication: GASTROOESOPHAGEAL REFLUX DISEASE
     Route: 048
     Dates: start: 20010101
  4. ENALAPRIL MALEATE [Concomitant]
  5. WARFARIN SODIUM [Concomitant]
  6. CARBIDOPA AND LEVODOPA [Concomitant]
     Dosage: 25/100 MG AT NIGHT
  7. METOPROLOL TARTRATE [Concomitant]
  8. NEXIUM [Suspect]
     Indication: ABDOMINAL PAIN UPPER
     Route: 048
     Dates: start: 20010101

REACTIONS (2)
  - CARDIAC FAILURE CONGESTIVE [None]
  - ATRIAL FIBRILLATION [None]
